FAERS Safety Report 16048331 (Version 1)
Quarter: 2019Q1

REPORT INFORMATION
  Report Type: Report from Study
  Country: US (occurrence: US)
  Receive Date: 20190307
  Receipt Date: 20190307
  Transmission Date: 20190418
  Serious: Yes (Hospitalization)
  Sender: FDA-Public Use
  Company Number: US-SA-2019SA059833

PATIENT
  Age: 79 Year
  Sex: Female

DRUGS (1)
  1. INSULIN GLARGINE [Suspect]
     Active Substance: INSULIN GLARGINE
     Indication: TYPE 2 DIABETES MELLITUS
     Dosage: 28 U, QD
     Route: 058

REACTIONS (10)
  - Dyspnoea [Unknown]
  - Needle issue [Unknown]
  - Dehydration [Unknown]
  - Pericardial effusion [Unknown]
  - Arthritis [Not Recovered/Not Resolved]
  - Coronary artery thrombosis [Unknown]
  - Pleural effusion [Unknown]
  - Blood potassium increased [Unknown]
  - Malaise [Unknown]
  - Blood sodium decreased [Unknown]

NARRATIVE: CASE EVENT DATE: 20181102
